FAERS Safety Report 20907864 (Version 2)
Quarter: 2022Q3

REPORT INFORMATION
  Report Type: Spontaneous
  Country: US (occurrence: US)
  Receive Date: 20220602
  Receipt Date: 20220704
  Transmission Date: 20221027
  Serious: Yes (Other)
  Sender: FDA-Public Use
  Company Number: US-PFIZER INC-202200785668

PATIENT
  Age: 88 Year
  Sex: Female
  Weight: 51.701 kg

DRUGS (3)
  1. CEFTAZIDIME [Suspect]
     Active Substance: CEFTAZIDIME
     Indication: Pseudomonas infection
     Dosage: UNK (PICC LINE INSERTED FOR CONSTANT INFUSION OF CEFTAZIDIME)
     Dates: start: 20191218
  2. CEFTAZIDIME [Suspect]
     Active Substance: CEFTAZIDIME
     Indication: Cystitis
     Dosage: UNK (CONTINUOUSLY 24 HOURS A DAY FOR SIX WEEKS)
     Dates: start: 202001, end: 20200318
  3. CEFTAZIDIME [Suspect]
     Active Substance: CEFTAZIDIME
     Indication: Vaginal infection
     Dosage: UNK, 1X/DAY
     Route: 048

REACTIONS (10)
  - Deafness [Unknown]
  - Somnolence [Unknown]
  - Gait disturbance [Unknown]
  - Fatigue [Unknown]
  - Head discomfort [Unknown]
  - Malaise [Unknown]
  - Alopecia [Unknown]
  - Weight decreased [Unknown]
  - Hypertension [Unknown]
  - Cystitis escherichia [Unknown]
